FAERS Safety Report 7412196-8 (Version None)
Quarter: 2011Q2

REPORT INFORMATION
  Report Type: 
  Country: None (occurrence: None)
  Receive Date: 20110413
  Receipt Date: 20110401
  Transmission Date: 20111010
  Serious: Yes (Other)
  Sender: FDA-Public Use
  Company Number: US-JNJFOC-20110401846

PATIENT
  Sex: Female
  Weight: 58.97 kg

DRUGS (15)
  1. MARIJUANA [Concomitant]
     Route: 055
  2. DURAGESIC [Suspect]
     Indication: FIBROMYALGIA
     Route: 062
  3. FENTANYL CITRATE [Suspect]
     Indication: FIBROMYALGIA
     Route: 062
  4. DURAGESIC [Suspect]
     Route: 062
  5. FENTANYL CITRATE [Suspect]
     Route: 062
  6. HYDROXYZINE [Concomitant]
     Indication: ANXIETY
     Route: 048
  7. FENTANYL CITRATE [Suspect]
     Route: 062
  8. LIPITOR [Concomitant]
     Indication: BLOOD CHOLESTEROL INCREASED
     Route: 048
  9. CLONAZEPAM [Concomitant]
     Indication: ANXIETY
     Route: 048
  10. MIRAPEX [Concomitant]
     Indication: RESTLESS LEGS SYNDROME
     Route: 048
  11. UNSPECIFIED GENERIC DRUG [Concomitant]
     Indication: TINNITUS
     Route: 045
  12. CYMBALTA [Concomitant]
     Indication: DEPRESSION
     Route: 048
  13. DURAGESIC [Suspect]
     Route: 062
  14. DURAGESIC [Suspect]
     Route: 062
  15. UNSPECIFIED GENERIC DRUG [Concomitant]
     Route: 045

REACTIONS (7)
  - PAIN [None]
  - DEPRESSION [None]
  - INAPPROPRIATE SCHEDULE OF DRUG ADMINISTRATION [None]
  - ASTHENIA [None]
  - DRUG EFFECT DECREASED [None]
  - DRUG INEFFECTIVE [None]
  - PRODUCT QUALITY ISSUE [None]
